FAERS Safety Report 18576893 (Version 2)
Quarter: 2020Q4

REPORT INFORMATION
  Report Type: Not Available
  Country: US (occurrence: US)
  Receive Date: 20201203
  Receipt Date: 20201216
  Transmission Date: 20210114
  Serious: Yes (Hospitalization)
  Sender: FDA-Public Use
  Company Number: US-NEUROCRINE BIOSCIENCES INC.-2020NBI04295

PATIENT
  Age: 73 Year
  Sex: Female

DRUGS (7)
  1. CLONAZEPAM. [Concomitant]
     Active Substance: CLONAZEPAM
     Dosage: AT BEDTIME
  2. LAMOTRIGINE. [Concomitant]
     Active Substance: LAMOTRIGINE
     Dosage: IN THE MORNING
  3. ROZEREM [Concomitant]
     Active Substance: RAMELTEON
     Dosage: AT BEDTIME
  4. CONCERTA [Concomitant]
     Active Substance: METHYLPHENIDATE HYDROCHLORIDE
     Dosage: IN THE MORNING
  5. WELLBUTRIN [Concomitant]
     Active Substance: BUPROPION HYDROCHLORIDE
     Dosage: IN THE MORNING
  6. INGREZZA [Suspect]
     Active Substance: VALBENAZINE
     Indication: TARDIVE DYSKINESIA
     Route: 048
     Dates: start: 20191204
  7. GABAPENTIN. [Concomitant]
     Active Substance: GABAPENTIN
     Dosage: AT BEDTIME

REACTIONS (1)
  - Depression [Unknown]
